FAERS Safety Report 17260369 (Version 1)
Quarter: 2020Q1

REPORT INFORMATION
  Report Type: Spontaneous
  Country: FR (occurrence: FR)
  Receive Date: 20200112
  Receipt Date: 20200112
  Transmission Date: 20200409
  Serious: Yes (Death, Other)
  Sender: FDA-Public Use
  Company Number: FR-BRISTOL-MYERS SQUIBB COMPANY-BMS-2020-002112

PATIENT
  Age: 85 Year
  Sex: Female
  Weight: 65 kg

DRUGS (1)
  1. COUMADINE [Suspect]
     Active Substance: WARFARIN SODIUM
     Indication: VENOUS THROMBOSIS
     Dosage: UNK
     Route: 048
     Dates: end: 20191115

REACTIONS (1)
  - Death [Fatal]

NARRATIVE: CASE EVENT DATE: 20191116
